FAERS Safety Report 17218385 (Version 2)
Quarter: 2020Q2

REPORT INFORMATION
  Report Type: Report from Study
  Country: BG (occurrence: BG)
  Receive Date: 20191231
  Receipt Date: 20200506
  Transmission Date: 20200713
  Serious: Yes (Other)
  Sender: FDA-Public Use
  Company Number: BG-TEVA-2019-BG-1159300

PATIENT
  Age: 63 Year
  Sex: Male
  Weight: 76 kg

DRUGS (8)
  1. AFLIBERCEPT [Suspect]
     Active Substance: AFLIBERCEPT
     Indication: COLORECTAL CANCER METASTATIC
     Dosage: UNK, QCY
     Route: 042
     Dates: start: 20180718, end: 20180718
  2. IRINOTECAN [Suspect]
     Active Substance: IRINOTECAN
     Indication: COLORECTAL CANCER METASTATIC
     Dosage: UNK, QCY
     Route: 042
     Dates: start: 20180718, end: 20180718
  3. IRINOTECAN [Suspect]
     Active Substance: IRINOTECAN
     Dosage: 20 MG/KG, QCY
     Route: 042
     Dates: start: 20180919, end: 20180919
  4. FLUOROURACIL. [Suspect]
     Active Substance: FLUOROURACIL
     Dosage: 20 MG/KG, QCY
     Route: 042
     Dates: start: 20180919, end: 20180919
  5. FOLINIC ACID [Suspect]
     Active Substance: LEUCOVORIN
     Dosage: 20 MG/KG, QCY
     Route: 042
     Dates: start: 20180919, end: 20180919
  6. FOLINIC ACID [Suspect]
     Active Substance: LEUCOVORIN
     Indication: COLORECTAL CANCER METASTATIC
     Dosage: UNK, QCY
     Route: 042
     Dates: start: 20180718, end: 20180718
  7. AFLIBERCEPT [Suspect]
     Active Substance: AFLIBERCEPT
     Route: 042
     Dates: start: 20180919, end: 20180919
  8. FLUOROURACIL. [Suspect]
     Active Substance: FLUOROURACIL
     Indication: COLORECTAL CANCER METASTATIC
     Dosage: UNK, QCY
     Route: 042
     Dates: start: 20180718, end: 20180718

REACTIONS (7)
  - Neutropenia [Recovered/Resolved]
  - Leukopenia [Recovered/Resolved]
  - Fatigue [Recovered/Resolved]
  - Pruritus [Recovered/Resolved]
  - Diarrhoea [Recovered/Resolved]
  - Stomatitis [Recovered/Resolved]
  - Epistaxis [Recovered/Resolved]

NARRATIVE: CASE EVENT DATE: 20180808
